FAERS Safety Report 7623267-5 (Version None)
Quarter: 2011Q3

REPORT INFORMATION
  Report Type: 
  Country: None (occurrence: None)
  Receive Date: 20110720
  Receipt Date: 20110706
  Transmission Date: 20111222
  Serious: Yes (Hospitalization, Other)
  Sender: FDA-Public Use
  Company Number: JP-ROCHE-681985

PATIENT
  Sex: Female

DRUGS (8)
  1. TOCILIZUMAB [Suspect]
     Route: 041
     Dates: start: 20091210, end: 20091210
  2. CLINORIL [Concomitant]
     Route: 048
     Dates: start: 20100106
  3. PREDNISOLONE [Concomitant]
     Route: 048
     Dates: start: 20100106
  4. METHOTREXATE [Suspect]
     Indication: RHEUMATOID ARTHRITIS
     Route: 048
     Dates: start: 20100106
  5. FOLIC ACID [Concomitant]
     Dosage: FORM: PERORAL AGENT
     Route: 048
     Dates: start: 20100106
  6. TOCILIZUMAB [Suspect]
     Route: 041
     Dates: start: 20100106, end: 20100106
  7. TOCILIZUMAB [Suspect]
     Indication: RHEUMATOID ARTHRITIS
     Route: 041
     Dates: start: 20091111, end: 20091111
  8. RISEDRONATE SODIUM [Suspect]
     Dosage: DOSAGE IS UNCERTAIN.
     Route: 048

REACTIONS (3)
  - OSTEONECROSIS OF JAW [None]
  - HODGKIN'S DISEASE [None]
  - MUCOSAL NECROSIS [None]
